FAERS Safety Report 13748442 (Version 3)
Quarter: 2018Q4

REPORT INFORMATION
  Report Type: Spontaneous
  Country: IT (occurrence: IT)
  Receive Date: 20170713
  Receipt Date: 20181016
  Transmission Date: 20190204
  Serious: Yes (Hospitalization)
  Sender: FDA-Public Use
  Company Number: IT-ACCORD-053424

PATIENT
  Age: 63 Year
  Sex: Female

DRUGS (9)
  1. AUGMENTIN GLAXOSMITHKLINE S.P.A. [Concomitant]
     Dosage: STRENGTH:875 MG/125 MG
  2. OXYCODONE [Concomitant]
     Active Substance: OXYCODONE
     Indication: PRODUCT USED FOR UNKNOWN INDICATION
  3. OXALIPLATIN ACCORD [Suspect]
     Active Substance: OXALIPLATIN
     Indication: ADENOCARCINOMA OF COLON
     Dosage: 5 MG/ML
     Route: 042
     Dates: start: 20170608, end: 20170608
  4. FOLIC ACID. [Concomitant]
     Active Substance: FOLIC ACID
     Dates: start: 20170608
  5. PREGABALIN ACCORD HEALTHCARE LIMITED [Concomitant]
     Dosage: STRENGTH:25 MG
  6. ONDANSETRON [Concomitant]
     Active Substance: ONDANSETRON
     Dates: start: 20170108
  7. VECTIBIX [Suspect]
     Active Substance: PANITUMUMAB
     Indication: ADENOCARCINOMA OF COLON
     Dosage: STRENGTH: 20 MG/ML, AT 11.35 A.M
     Route: 042
     Dates: start: 20170608
  8. HEPARIN [Concomitant]
     Active Substance: HEPARIN SODIUM
  9. DEXAMETHASONE. [Concomitant]
     Active Substance: DEXAMETHASONE
     Dates: start: 20170108

REACTIONS (9)
  - Dyspnoea [Recovered/Resolved]
  - Retching [Recovered/Resolved]
  - Pyrexia [Recovered/Resolved]
  - Chills [Recovered/Resolved]
  - Abdominal pain upper [Recovered/Resolved]
  - Erythema [Recovered/Resolved]
  - Vomiting [Recovered/Resolved]
  - Thrombocytopenia [Unknown]
  - Acute coronary syndrome [Unknown]

NARRATIVE: CASE EVENT DATE: 20170608
